FAERS Safety Report 18013265 (Version 2)
Quarter: 2020Q3

REPORT INFORMATION
  Report Type: Spontaneous
  Country: US (occurrence: US)
  Receive Date: 20200713
  Receipt Date: 20200714
  Transmission Date: 20201103
  Serious: No
  Sender: FDA-Public Use
  Company Number: US-PFIZER INC-2020266674

PATIENT
  Age: 32 Year
  Sex: Male
  Weight: 63.5 kg

DRUGS (3)
  1. MARIJUANA [Concomitant]
     Active Substance: CANNABIS SATIVA SUBSP. INDICA TOP
     Indication: INTERVERTEBRAL DISC PROTRUSION
     Dosage: 20:1 RATIO AND A 50:1 RATIO AT NIGHT
     Route: 048
  2. MARIJUANA [Concomitant]
     Active Substance: CANNABIS SATIVA SUBSP. INDICA TOP
     Indication: PAIN
  3. EUCRISA [Suspect]
     Active Substance: CRISABOROLE
     Indication: ECZEMA
     Dosage: UNK
     Dates: start: 202007, end: 202007

REACTIONS (3)
  - Application site pruritus [Unknown]
  - Drug ineffective [Unknown]
  - Application site pain [Unknown]
